FAERS Safety Report 9177098 (Version 2)
Quarter: 2013Q2

REPORT INFORMATION
  Report Type: Spontaneous
  Country: US (occurrence: US)
  Receive Date: 20130321
  Receipt Date: 20130412
  Transmission Date: 20140414
  Serious: Yes (Other)
  Sender: FDA-Public Use
  Company Number: US-JNJFOC-2006098752

PATIENT
  Age: 72 Year
  Sex: Male
  Weight: 68 kg

DRUGS (6)
  1. MOTRIN [Suspect]
     Indication: PAIN
     Dosage: DAILY DOSE TEXT: 800 MG THREE TIMES DAILY
     Route: 048
     Dates: start: 20050823
  2. DILANTIN [Interacting]
     Indication: CONVULSION
     Dosage: FREQUENCY TEXT: UNKNOWN DAILY DOSE TEXT: UNKNOWN
     Route: 065
  3. ROBAXIN [Suspect]
     Indication: PAIN
     Dosage: DAILY DOSE TEXT: 750 MG THREE TIMES DAILY
     Route: 065
     Dates: start: 20050823
  4. SKELAXIN [Suspect]
     Indication: PAIN
     Dosage: DAILY DOSE TEXT: 600 MG THREE TIMES DAILY
     Route: 065
     Dates: start: 20050823
  5. VICODIN [Suspect]
     Indication: PAIN
     Dosage: DAILY DOSE TEXT: UNKNOWN
     Route: 065
     Dates: start: 20050823
  6. LIPITOR [Concomitant]

REACTIONS (14)
  - Convulsion [Unknown]
  - Coronary artery bypass [Unknown]
  - Road traffic accident [Unknown]
  - Lumbar spine flattening [Unknown]
  - Muscle injury [Unknown]
  - Gastritis erosive [Recovering/Resolving]
  - Anticonvulsant drug level below therapeutic [Unknown]
  - Blood cholesterol increased [Unknown]
  - Drug interaction [Unknown]
  - Malaise [Unknown]
  - Body height decreased [Not Recovered/Not Resolved]
  - Pain [Unknown]
  - Diarrhoea [Recovering/Resolving]
  - Adverse drug reaction [Unknown]
